FAERS Safety Report 25275700 (Version 3)
Quarter: 2025Q3

REPORT INFORMATION
  Report Type: Report from Study
  Country: US (occurrence: US)
  Receive Date: 20250507
  Receipt Date: 20250708
  Transmission Date: 20251021
  Serious: Yes (Hospitalization, Other)
  Sender: ABBVIE
  Company Number: US-ABBVIE-6265863

PATIENT
  Sex: Female

DRUGS (1)
  1. IMBRUVICA [Suspect]
     Active Substance: IBRUTINIB
     Indication: Hairy cell leukaemia
     Route: 048
     Dates: start: 202301

REACTIONS (5)
  - Pericardial effusion [Unknown]
  - Pulmonary oedema [Unknown]
  - Asthenia [Unknown]
  - Dyspnoea [Unknown]
  - Therapeutic product effect decreased [Unknown]
